FAERS Safety Report 9543887 (Version 2)
Quarter: 2013Q4

REPORT INFORMATION
  Report Type: Spontaneous
  Country: US (occurrence: US)
  Receive Date: 20130923
  Receipt Date: 20131004
  Transmission Date: 20140711
  Serious: Yes (Other)
  Sender: FDA-Public Use
  Company Number: US-BAYER-2013-114557

PATIENT
  Age: 61 Year
  Sex: Female

DRUGS (8)
  1. SYNTHROID [Concomitant]
  2. TYLENOL [PARACETAMOL] [Concomitant]
     Dosage: UNK UNK, PRN
  3. PERCOCET [OXYCODONE HYDROCHLORIDE,PARACETAMOL] [Concomitant]
     Dosage: UNK UNK, PRN
  4. METFORMIN [Concomitant]
  5. LISINOPRIL HCT [Concomitant]
  6. ALEVE CAPLET [Suspect]
     Indication: MYALGIA
     Dosage: 1 DF, PRN
     Route: 048
     Dates: end: 201308
  7. ALEVE CAPLET [Suspect]
     Indication: INFLAMMATION
  8. NORVASC [Concomitant]

REACTIONS (3)
  - Small intestinal haemorrhage [Not Recovered/Not Resolved]
  - Fatigue [Recovered/Resolved]
  - Iron deficiency anaemia [Recovered/Resolved]
